FAERS Safety Report 8844925 (Version 5)
Quarter: 2012Q4

REPORT INFORMATION
  Report Type: 
  Country: JP (occurrence: JP)
  Receive Date: 20121017
  Receipt Date: 20121231
  Transmission Date: 20130627
  Serious: Yes (Other)
  Sender: FDA-Public Use
  Company Number: PHHY2012JP084626

PATIENT
  Age: 70 Year
  Sex: Male

DRUGS (3)
  1. EXFORGE [Suspect]
     Indication: HYPERTENSION
     Dosage: 1 DF, daily
     Route: 048
     Dates: start: 20120901, end: 20120921
  2. CELECOX [Concomitant]
     Route: 048
     Dates: start: 20120703, end: 20120731
  3. MOHRUS [Concomitant]
     Dates: start: 20120801

REACTIONS (6)
  - Rhabdomyolysis [Recovering/Resolving]
  - Malaise [Recovered/Resolved]
  - Muscle spasms [Not Recovered/Not Resolved]
  - Blood pressure systolic increased [Unknown]
  - General physical health deterioration [Unknown]
  - Nasopharyngitis [Unknown]
